FAERS Safety Report 15363200 (Version 1)
Quarter: 2018Q3

REPORT INFORMATION
  Report Type: Spontaneous
  Country: JP (occurrence: JP)
  Receive Date: 20180907
  Receipt Date: 20180907
  Transmission Date: 20181010
  Serious: Yes (Other)
  Sender: FDA-Public Use
  Company Number: JP-BAUSCH-BL-2018-024588

PATIENT
  Age: 66 Year
  Sex: Female

DRUGS (3)
  1. PREDNISOLONE. [Suspect]
     Active Substance: PREDNISOLONE
     Dosage: A SLOWLY TAPERING COURSE OF ORAL PREDNISOLONE
     Route: 048
  2. CICLOSPORIN [Suspect]
     Active Substance: CYCLOSPORINE
     Indication: VOGT-KOYANAGI-HARADA SYNDROME
     Route: 065
  3. PREDNISOLONE. [Suspect]
     Active Substance: PREDNISOLONE
     Indication: VOGT-KOYANAGI-HARADA SYNDROME
     Route: 048

REACTIONS (1)
  - Cellulitis [Recovered/Resolved]
